FAERS Safety Report 10245403 (Version 2)
Quarter: 2014Q3

REPORT INFORMATION
  Report Type: Spontaneous
  Country: JP (occurrence: JP)
  Receive Date: 20140618
  Receipt Date: 20140716
  Transmission Date: 20150326
  Serious: Yes (Other)
  Sender: FDA-Public Use
  Company Number: PHHY2014JP074352

PATIENT
  Age: 72 Year
  Sex: Male

DRUGS (15)
  1. COMTAN [Suspect]
     Active Substance: ENTACAPONE
     Indication: PARKINSON^S DISEASE
     Dosage: 400 MG,DAILY
     Route: 048
     Dates: start: 20101001
  2. NIKORANMART [Concomitant]
     Active Substance: NICORANDIL
     Dosage: 45 MG, DAILY
     Route: 048
     Dates: start: 20101001, end: 20140409
  3. BAYASPIRIN [Concomitant]
     Active Substance: ASPIRIN
     Dosage: 100 MG, DAILY
     Route: 048
     Dates: start: 20101001
  4. WARFARIN [Concomitant]
     Active Substance: WARFARIN
     Dosage: UNK UKN, UNK
     Route: 048
  5. NIKORANMART [Concomitant]
     Active Substance: NICORANDIL
     Dosage: UNK UKN, UNK
     Route: 048
     Dates: start: 20140522
  6. LANIRAPID [Suspect]
     Active Substance: METILDIGOXIN
     Dosage: UNK UKN, UNK
     Route: 048
     Dates: start: 20140410, end: 20140521
  7. MAGLAX [Concomitant]
     Active Substance: MAGNESIUM OXIDE
     Dosage: UNK UKN, UNK
     Route: 048
  8. LASIX [Concomitant]
     Active Substance: FUROSEMIDE
     Dosage: 20 MG, DAILY
     Route: 048
     Dates: start: 20101001
  9. DIGOSIN [Concomitant]
     Active Substance: DIGOXIN
     Dosage: 0.25 MG, DAILY
     Route: 048
     Dates: start: 20101001, end: 20140409
  10. DIGOSIN [Concomitant]
     Active Substance: DIGOXIN
     Dosage: UNK UKN, UNK
     Route: 048
     Dates: start: 20140522
  11. LIVALO [Suspect]
     Active Substance: PITAVASTATIN CALCIUM
     Dosage: UNK UKN, UNK
     Route: 048
     Dates: start: 20140410, end: 20140521
  12. FP [Concomitant]
     Active Substance: SELEGILINE HYDROCHLORIDE
     Dosage: 2.5 MG, DAILY
     Route: 048
     Dates: start: 20101001
  13. NEODOPASTON [Concomitant]
     Active Substance: CARBIDOPA\LEVODOPA
     Dosage: 400 MG, UNK
     Route: 048
     Dates: start: 20101001
  14. ALDACTONE [Concomitant]
     Active Substance: SPIRONOLACTONE
     Dosage: 25 MG, DAILY
     Route: 048
     Dates: start: 20101001
  15. MIRAPEX [Concomitant]
     Active Substance: PRAMIPEXOLE DIHYDROCHLORIDE
     Dosage: 3 MG, DAILY
     Route: 048
     Dates: start: 20101001

REACTIONS (1)
  - Parkinson^s disease [Recovering/Resolving]

NARRATIVE: CASE EVENT DATE: 20140521
